FAERS Safety Report 17055222 (Version 4)
Quarter: 2019Q4

REPORT INFORMATION
  Report Type: Report from Study
  Country: US (occurrence: US)
  Receive Date: 20191120
  Receipt Date: 20191227
  Transmission Date: 20200122
  Serious: Yes (Hospitalization)
  Sender: FDA-Public Use
  Company Number: US-VERTEX PHARMACEUTICALS-2019-011182

PATIENT
  Age: 31 Year
  Sex: Male
  Weight: 72 kg

DRUGS (41)
  1. ALBUTEROL [SALBUTAMOL] [Concomitant]
     Active Substance: ALBUTEROL
     Indication: OBSTRUCTIVE AIRWAYS DISORDER
     Dosage: 7.5 MILLIGRAM, BID
     Route: 055
     Dates: start: 20160610, end: 20191110
  2. PREDNISONE. [Concomitant]
     Active Substance: PREDNISONE
     Dosage: 2 MG, QD
     Route: 048
     Dates: start: 20190911, end: 20190917
  3. PREDNISONE. [Concomitant]
     Active Substance: PREDNISONE
     Dosage: 1 MG, QD
     Route: 048
     Dates: start: 20190925, end: 20191002
  4. SILDENAFIL CITRATE. [Concomitant]
     Active Substance: SILDENAFIL CITRATE
     Indication: CYSTIC FIBROSIS LUNG
     Dosage: 40 MG, TID
     Route: 048
     Dates: start: 20180222, end: 20191110
  5. ZENPEP [Concomitant]
     Active Substance: PANCRELIPASE AMYLASE\PANCRELIPASE LIPASE\PANCRELIPASE PROTEASE
     Indication: PANCREATIC FAILURE
     Dosage: 6 CAPSULES/MEAL, 4 CAPSULES/ SNACK
     Dates: start: 20151125
  6. MILK THISTLE [SILYBUM MARIANUM] [Concomitant]
     Active Substance: DIETARY SUPPLEMENT\HERBALS\MILK THISTLE
     Dosage: UNK
  7. ELEXACAFTOR/TEZACAFTOR/IVACAFTOR AND IVACAFTOR [Suspect]
     Active Substance: ELEXACAFTOR\IVACAFTOR\TEZACAFTOR
     Indication: CYSTIC FIBROSIS LUNG
     Dosage: 2 TABS OF TRIKAFTA AM; 1 TAB IVACAFTOR PM
     Route: 048
     Dates: start: 20191017
  8. BUDESONIDE. [Concomitant]
     Active Substance: BUDESONIDE
     Indication: CHRONIC SINUSITIS
     Dosage: 2 MG, BID
     Route: 055
     Dates: start: 20190523
  9. PREDNISONE. [Concomitant]
     Active Substance: PREDNISONE
     Indication: OBSTRUCTIVE AIRWAYS DISORDER
     Dosage: 2.5 MG, QD
     Route: 048
     Dates: start: 201904, end: 20190910
  10. PREDNISONE. [Concomitant]
     Active Substance: PREDNISONE
     Dosage: 0.5 EVERY OTHER DAY
     Route: 048
     Dates: start: 20191010, end: 20191017
  11. URSODIOL. [Concomitant]
     Active Substance: URSODIOL
     Indication: CYSTIC FIBROSIS HEPATIC DISEASE
     Dosage: 600 MG, TID
     Route: 048
     Dates: start: 20121120
  12. CBD OIL [Concomitant]
     Active Substance: CANNABIDIOL\HERBALS
  13. GLUTATHIONE [Concomitant]
     Active Substance: GLUTATHIONE
  14. AZITHROMYCIN ANHYDROUS. [Concomitant]
     Active Substance: AZITHROMYCIN ANHYDROUS
     Indication: ATYPICAL MYCOBACTERIAL INFECTION
     Dosage: 500 MG, QD
     Route: 048
     Dates: start: 20161019
  15. PREDNISONE. [Concomitant]
     Active Substance: PREDNISONE
     Dosage: 1.5 MG, QD
     Route: 048
     Dates: start: 20190918, end: 20190924
  16. TOBRAMYCIN. [Concomitant]
     Active Substance: TOBRAMYCIN
     Indication: ATYPICAL MYCOBACTERIAL INFECTION
     Dosage: 300 MG, BID
     Route: 055
     Dates: start: 20190822, end: 20190919
  17. GAMMA-AMINOBUTYRIC ACID [Concomitant]
     Active Substance: .GAMMA.-AMINOBUTYRIC ACID
  18. ELEXACAFTOR/TEZACAFTOR/IVACAFTOR AND IVACAFTOR [Suspect]
     Active Substance: ELEXACAFTOR\IVACAFTOR\TEZACAFTOR
     Indication: CYSTIC FIBROSIS
     Dosage: ALTERNATING DAYS OF EITHER 2 TABLETS OF VX17-445/TEZ/IVA OR 1 TAB OF IVA
     Route: 048
     Dates: start: 20190905, end: 20191016
  19. PHYTONADIONE. [Concomitant]
     Active Substance: PHYTONADIONE
     Indication: HAEMOPTYSIS
     Dosage: 10 MG, QD
     Route: 048
     Dates: start: 20161128
  20. IMIPENEM [Concomitant]
     Active Substance: IMIPENEM
     Indication: ATYPICAL MYCOBACTERIAL INFECTION
     Dosage: 1 GRAM, BID
     Route: 042
     Dates: start: 20190509, end: 20191110
  21. IMIPENEM [Concomitant]
     Active Substance: IMIPENEM
     Dosage: 1 UNK
     Route: 042
     Dates: start: 20191114
  22. COLISTINE [COLISTIN] [Concomitant]
     Indication: ATYPICAL MYCOBACTERIAL INFECTION
     Dosage: 150 MG, BID
     Route: 055
     Dates: start: 20190920, end: 20191014
  23. ALBUTEROL HFA [Concomitant]
     Active Substance: ALBUTEROL SULFATE
     Indication: OBSTRUCTIVE AIRWAYS DISORDER
     Dosage: 2.5 MG, PRN
     Dates: start: 20191111, end: 20191117
  24. ACETAMINOPHEN. [Concomitant]
     Active Substance: ACETAMINOPHEN
     Indication: SEROTONIN SYNDROME
     Dosage: 65 MG, PRN
     Route: 048
     Dates: start: 20191111, end: 20191117
  25. CEFTAZIDIME. [Concomitant]
     Active Substance: CEFTAZIDIME
     Indication: ANXIETY
     Dosage: UNK, QD
     Dates: start: 20191111, end: 20191117
  26. COLISTIMETHATE SODIUM. [Concomitant]
     Active Substance: COLISTIMETHATE SODIUM
     Indication: CYSTIC FIBROSIS LUNG
     Dosage: 150 MG, BID
     Route: 055
     Dates: start: 20150323, end: 20191003
  27. LAMPRENE [Concomitant]
     Active Substance: CLOFAZIMINE
     Indication: ATYPICAL MYCOBACTERIAL INFECTION
     Dosage: 100 MG, QD
     Route: 048
     Dates: start: 20161019, end: 20190907
  28. MOXIFLOXACIN HCL [Concomitant]
     Active Substance: MOXIFLOXACIN
     Indication: ATYPICAL MYCOBACTERIAL INFECTION
     Dosage: 400 MG, QD
     Route: 048
     Dates: start: 20190515, end: 20191110
  29. PERFOROMIST [Concomitant]
     Active Substance: FORMOTEROL FUMARATE DIHYDRATE
     Indication: OBSTRUCTIVE AIRWAYS DISORDER
     Dosage: 40 MICROGRAM, BID
     Route: 055
     Dates: start: 20170213, end: 20191126
  30. ZOLOFT [Concomitant]
     Active Substance: SERTRALINE HYDROCHLORIDE
  31. VENTOLIN HFA [Concomitant]
     Active Substance: ALBUTEROL SULFATE
     Indication: OBSTRUCTIVE AIRWAYS DISORDER
     Dosage: 2 PUFFS, IMHALED
     Dates: start: 20160415
  32. VITAMIN B12 [COBAMAMIDE] [Concomitant]
     Dosage: UNK
  33. ELEXACAFTOR/TEZACAFTOR/IVACAFTOR AND IVACAFTOR [Suspect]
     Active Substance: ELEXACAFTOR\IVACAFTOR\TEZACAFTOR
     Dosage: UNK
     Route: 048
     Dates: start: 20191114
  34. CILASTATIN [Concomitant]
     Active Substance: CILASTATIN
     Indication: ATYPICAL MYCOBACTERIAL INFECTION
     Dosage: 1 GRAM, BID
     Route: 042
     Dates: start: 20190509, end: 20191110
  35. CILASTATIN [Concomitant]
     Active Substance: CILASTATIN
     Dosage: 1 GRAM, BID
     Route: 042
     Dates: start: 20191114
  36. PREDNISONE. [Concomitant]
     Active Substance: PREDNISONE
     Dosage: 0.5 MG, QD
     Route: 048
     Dates: start: 20191003, end: 20191009
  37. DEXTROSE. [Concomitant]
     Active Substance: DEXTROSE
     Indication: SEROTONIN SYNDROME
     Dosage: UNK, PRN
     Dates: start: 20191111, end: 20191117
  38. PULMOZYME [Concomitant]
     Active Substance: DORNASE ALFA
     Indication: CYSTIC FIBROSIS LUNG
     Dosage: 2.5 MG, BID
     Route: 055
     Dates: start: 2000
  39. SERTRALINE [Concomitant]
     Active Substance: SERTRALINE HYDROCHLORIDE
     Indication: ANXIETY
     Dosage: 200 MG, QD
     Route: 048
     Dates: start: 201904, end: 20191110
  40. CILASTATIN [Concomitant]
     Active Substance: CILASTATIN
     Dosage: 150 MG, BID
     Route: 055
     Dates: start: 20190920, end: 20191014
  41. CLONAZEPAM. [Concomitant]
     Active Substance: CLONAZEPAM
     Indication: ANXIETY
     Dosage: 0.75 MG, BID
     Route: 048
     Dates: start: 20191111, end: 20191117

REACTIONS (1)
  - Serotonin syndrome [Recovered/Resolved]

NARRATIVE: CASE EVENT DATE: 20191110
